FAERS Safety Report 21811118 (Version 1)
Quarter: 2023Q1

REPORT INFORMATION
  Report Type: Spontaneous
  Country: TR (occurrence: TR)
  Receive Date: 20230103
  Receipt Date: 20230103
  Transmission Date: 20230418
  Serious: Yes (Other)
  Sender: FDA-Public Use
  Company Number: TR-UCBSA-2022073452

PATIENT

DRUGS (1)
  1. CIMZIA [Suspect]
     Active Substance: CERTOLIZUMAB PEGOL
     Indication: Arthritis
     Dosage: UNK

REACTIONS (5)
  - Lymphoma [Unknown]
  - Plasma cell myeloma [Unknown]
  - Lymphocytic leukaemia [Unknown]
  - Paraproteinaemia [Unknown]
  - Myelodysplastic syndrome [Unknown]
